FAERS Safety Report 8507163-7 (Version None)
Quarter: 2012Q3

REPORT INFORMATION
  Report Type: 
  Country: None (occurrence: None)
  Receive Date: 20120712
  Receipt Date: 20120706
  Transmission Date: 20120928
  Serious: Yes (Disabling)
  Sender: FDA-Public Use
  Company Number: PHHY2012GB058359

PATIENT
  Age: 78 Year
  Sex: Female
  Weight: 65.5 kg

DRUGS (7)
  1. SIMVASTATIN [Concomitant]
     Dosage: UNK
     Dates: start: 20120321, end: 20120418
  2. PRAVASTATIN [Suspect]
     Dosage: UNK
     Dates: start: 20120529, end: 20120626
  3. BENDROFLUMETHIAZIDE [Concomitant]
     Dates: start: 20120321, end: 20120418
  4. IBUPROFEN [Concomitant]
     Dates: start: 20120321, end: 20120418
  5. BENDROFLUMETHIAZIDE [Concomitant]
     Dates: start: 20120501
  6. ACETAMINOPHEN [Concomitant]
     Dates: start: 20120321, end: 20120413
  7. PRAVASTATIN [Concomitant]
     Dates: start: 20120529

REACTIONS (1)
  - TENDON RUPTURE [None]
